FAERS Safety Report 4752358-1 (Version None)
Quarter: 2005Q3

REPORT INFORMATION
  Report Type: 
  Country: None (occurrence: None)
  Receive Date: 20050824
  Receipt Date: 20050824
  Transmission Date: 20060218
  Serious: Yes (Hospitalization)
  Sender: FDA-Public Use
  Company Number: None

PATIENT
  Age: 59 Year
  Sex: Female
  Weight: 92.5338 kg

DRUGS (8)
  1. INDOMETHACIN [Suspect]
     Indication: ARTHRALGIA
     Dosage: PO
     Route: 048
  2. IBUPROFEN [Suspect]
     Indication: TOOTHACHE
     Dosage: UNKNOWN PO  5-6 DAYS
     Route: 048
  3. BISACODYL [Concomitant]
  4. COLON ELECTROLYTE LAVAGE PWD [Concomitant]
  5. LEVOTHYROXINE SODIUM [Concomitant]
  6. MAGNESIUM CITRATE LIQUID [Concomitant]
  7. METOCLOPRAMIDE HCL [Concomitant]
  8. OMEPRAZOLE [Concomitant]

REACTIONS (4)
  - DYSPEPSIA [None]
  - TOOTHACHE [None]
  - ULCER [None]
  - UPPER GASTROINTESTINAL HAEMORRHAGE [None]
